FAERS Safety Report 5755897-X (Version None)
Quarter: 2008Q2

REPORT INFORMATION
  Report Type: 
  Country: None (occurrence: None)
  Receive Date: 20080528
  Receipt Date: 20080509
  Transmission Date: 20081010
  Serious: Yes (Other)
  Sender: FDA-Public Use
  Company Number: 2008AL004468

PATIENT
  Sex: Male

DRUGS (1)
  1. DIGOXIN [Suspect]
     Indication: DRUG USE FOR UNKNOWN INDICATION

REACTIONS (7)
  - AGITATION [None]
  - ANOREXIA [None]
  - DIZZINESS [None]
  - FATIGUE [None]
  - NAUSEA [None]
  - POISONING [None]
  - WEIGHT DECREASED [None]
